FAERS Safety Report 5035830-9 (Version None)
Quarter: 2006Q2

REPORT INFORMATION
  Report Type: 
  Country: None (occurrence: None)
  Receive Date: 20060526
  Receipt Date: 20060411
  Transmission Date: 20061013
  Serious: No
  Sender: FDA-Public Use
  Company Number: FABR-11364

PATIENT
  Age: 25 Year
  Sex: Male

DRUGS (2)
  1. FABRAZYME [Suspect]
     Indication: FABRY'S DISEASE
     Dosage: 100 MG Q2WKS IV
     Route: 042
     Dates: start: 20051005
  2. UNSPECIFIED MEDICATIONS [Concomitant]

REACTIONS (1)
  - DRUG WITHDRAWAL SYNDROME [None]
